FAERS Safety Report 19465724 (Version 8)
Quarter: 2023Q4

REPORT INFORMATION
  Report Type: Report from Study
  Country: US (occurrence: US)
  Receive Date: 20210626
  Receipt Date: 20231013
  Transmission Date: 20240109
  Serious: Yes (Other)
  Sender: FDA-Public Use
  Company Number: US-ABBVIE-21K-163-3963076-00

PATIENT
  Sex: Male

DRUGS (3)
  1. LUPRON [Suspect]
     Active Substance: LEUPROLIDE ACETATE
     Indication: Product used for unknown indication
     Route: 065
  2. XTANDI [Suspect]
     Active Substance: ENZALUTAMIDE
     Indication: Prostate cancer
     Route: 048
     Dates: start: 20210312
  3. XTANDI [Suspect]
     Active Substance: ENZALUTAMIDE
     Indication: Prostate cancer
     Route: 048
     Dates: start: 20200805

REACTIONS (10)
  - Intervertebral disc degeneration [Unknown]
  - Multiple allergies [Unknown]
  - Diarrhoea [Unknown]
  - Rhinorrhoea [Unknown]
  - Myalgia [Unknown]
  - Fatigue [Unknown]
  - Bone pain [Unknown]
  - Sneezing [Unknown]
  - Hypoaesthesia [Unknown]
  - Muscle atrophy [Unknown]
